FAERS Safety Report 4681722-4 (Version None)
Quarter: 2005Q2

REPORT INFORMATION
  Report Type: 
  Country: None (occurrence: None)
  Receive Date: 20050602
  Receipt Date: 20050520
  Transmission Date: 20051028
  Serious: Yes (Life-Threatening, Hospitalization)
  Sender: FDA-Public Use
  Company Number: HQWYE900624MAY05

PATIENT
  Age: 48 Year
  Sex: Female
  Weight: 59.93 kg

DRUGS (11)
  1. ORUVAIL [Suspect]
     Indication: DRUG USE FOR UNKNOWN INDICATION
     Dosage: 24 HR 150 MG; ORAL
     Route: 048
     Dates: end: 20050101
  2. PEG-INTRON [Suspect]
     Indication: HEPATITIS C
     Dosage: 64 MCG WEEKLY; INJECTIBLE POWDER
     Dates: start: 20040915, end: 20050126
  3. REBETOL [Suspect]
     Indication: HEPATITIS C
     Dosage: 800 MG DAILY; ORAL (SEE IMAGE)
     Route: 048
     Dates: start: 20040915, end: 20050126
  4. REBETOL [Suspect]
     Indication: HEPATITIS C
     Dosage: 800 MG DAILY; ORAL (SEE IMAGE)
     Route: 048
     Dates: start: 20050127
  5. OXYCODONE HCL [Concomitant]
  6. PROTONIX [Concomitant]
  7. TARKA [Concomitant]
  8. VITAMINE C (ASCORBIC ACID) [Concomitant]
  9. VITAMIN E [Concomitant]
  10. WELLBUTRIN [Concomitant]
  11. ZOCOR [Concomitant]

REACTIONS (17)
  - ABSCESS INTESTINAL [None]
  - BLOOD POTASSIUM DECREASED [None]
  - COLITIS [None]
  - COLITIS ISCHAEMIC [None]
  - DEPRESSION [None]
  - ECONOMIC PROBLEM [None]
  - HYPERTENSION [None]
  - LARGE INTESTINAL ULCER [None]
  - LOWER GASTROINTESTINAL HAEMORRHAGE [None]
  - PANCYTOPENIA [None]
  - PRURITUS [None]
  - RASH [None]
  - RECTAL HAEMORRHAGE [None]
  - REFUSAL OF TREATMENT BY PATIENT [None]
  - SWELLING [None]
  - TOBACCO ABUSE [None]
  - VASOSPASM [None]
